FAERS Safety Report 10094535 (Version 4)
Quarter: 2014Q3

REPORT INFORMATION
  Report Type: Spontaneous
  Country: US (occurrence: None)
  Receive Date: 20140418
  Receipt Date: 20140801
  Transmission Date: 20150326
  Serious: Yes (Life-Threatening, Hospitalization, Other)
  Sender: FDA-Public Use
  Company Number: UTC-047233

PATIENT
  Age: 80 Year
  Sex: Male
  Weight: 74.84 kg

DRUGS (3)
  1. TYVASO [Suspect]
     Active Substance: TREPROSTINIL
     Indication: PULMONARY ARTERIAL HYPERTENSION
     Route: 055
     Dates: start: 20131205, end: 20140406
  2. WARFARIN (WARFARIN) [Concomitant]
     Active Substance: WARFARIN
  3. REVATIO (SILDENAFIL CITRATE) [Concomitant]

REACTIONS (15)
  - Nephrolithiasis [None]
  - Respiratory depression [None]
  - Cough [None]
  - Hypotension [None]
  - Chest discomfort [None]
  - Drug administration error [None]
  - Testicular pain [None]
  - Accidental overdose [None]
  - Cholecystitis [None]
  - Mental impairment [None]
  - Visual acuity reduced [None]
  - Chronic obstructive pulmonary disease [None]
  - Condition aggravated [None]
  - International normalised ratio increased [None]
  - Hypoacusis [None]

NARRATIVE: CASE EVENT DATE: 20140405
